FAERS Safety Report 17665693 (Version 1)
Quarter: 2020Q2

REPORT INFORMATION
  Report Type: Spontaneous
  Country: US (occurrence: US)
  Receive Date: 20200414
  Receipt Date: 20200414
  Transmission Date: 20200713
  Serious: No
  Sender: FDA-Public Use
  Company Number: None

PATIENT
  Age: 50 Year
  Sex: Female
  Weight: 59.94 kg

DRUGS (15)
  1. CLOBETASOL PROPIONATE 0.05%, ORAL [Concomitant]
  2. ETOPOSIDE. [Suspect]
     Active Substance: ETOPOSIDE
     Indication: OVARIAN CANCER
     Route: 048
     Dates: start: 20200324, end: 20200414
  3. DEXAMETHASONE 0.5MG/5ML, ORAL [Concomitant]
  4. NEUPOGEN, 480MCG/1.6ML, IJ [Concomitant]
  5. ZITHROMAX 250MG,ORAL [Concomitant]
  6. CIMETIDINE 300MG, ORAL [Concomitant]
  7. DEXAMETHASONE 4MG, ORAL [Concomitant]
  8. ANASTRAZOLE 1MG, ORAL [Concomitant]
  9. ONDASETRON 8MG, ORAL [Concomitant]
  10. PROCHLORPERAZINE 5MG, ORAL [Concomitant]
  11. DEXAMETHASONE 4MG, ORAL [Concomitant]
  12. ELMIRON 100MG ,ORAL [Concomitant]
  13. LIDOCAINE VISCOUS 2%, ORAL [Concomitant]
  14. ACYCLOVIR 400MG, ORAL [Concomitant]
  15. BENTYL 10MG, ORAL [Concomitant]

REACTIONS (1)
  - Hospice care [None]

NARRATIVE: CASE EVENT DATE: 20200414
